FAERS Safety Report 9321028 (Version 1)
Quarter: 2013Q2

REPORT INFORMATION
  Report Type: Spontaneous
  Country: US (occurrence: US)
  Receive Date: 20130531
  Receipt Date: 20130531
  Transmission Date: 20140414
  Serious: No
  Sender: FDA-Public Use
  Company Number: US-PFIZER INC-2013164315

PATIENT
  Sex: Female

DRUGS (4)
  1. ZOLOFT [Suspect]
     Dosage: UNK,2X/DAY
  2. ZOLOFT [Suspect]
     Dosage: UNK,1X/DAY
  3. ZOLOFT [Suspect]
     Dosage: UNK,2X/DAY
  4. ZOLOFT [Suspect]
     Dosage: UNK

REACTIONS (3)
  - Drug ineffective [Unknown]
  - Feeling jittery [Unknown]
  - Anxiety [Unknown]
